FAERS Safety Report 11937476 (Version 1)
Quarter: 2016Q1

REPORT INFORMATION
  Report Type: Report from Study
  Country: US (occurrence: US)
  Receive Date: 20160121
  Receipt Date: 20160121
  Transmission Date: 20160526
  Serious: Yes (Death, Hospitalization, Other)
  Sender: FDA-Public Use
  Company Number: US-ASTRAZENECA-2015SE29633

PATIENT
  Age: 25025 Day
  Sex: Female
  Weight: 154.2 kg

DRUGS (5)
  1. ERYTHROPOIETIN [Concomitant]
     Active Substance: ERYTHROPOIETIN
     Dosage: 40000 UNITS WEEKLY
     Route: 058
  2. OMEPRAZOLE. [Suspect]
     Active Substance: OMEPRAZOLE
     Route: 048
  3. MULTIVITAMINS [Concomitant]
     Active Substance: VITAMINS
  4. METOCLOPRAMIDE HYDROCHLORIDE. [Concomitant]
     Active Substance: METOCLOPRAMIDE HYDROCHLORIDE
     Indication: NAUSEA
     Route: 048
  5. OLAPARIB [Suspect]
     Active Substance: OLAPARIB
     Indication: OVARIAN CANCER
     Dosage: 8, TWO TIMES A DAY
     Route: 048
     Dates: start: 20150223, end: 20150321

REACTIONS (16)
  - Mucosal inflammation [Unknown]
  - Gait disturbance [Unknown]
  - Fatigue [Unknown]
  - Dyspepsia [Unknown]
  - Orthopnoea [Unknown]
  - Death [Fatal]
  - Decreased appetite [Unknown]
  - Pain [Unknown]
  - Pneumonia [Unknown]
  - Nausea [Unknown]
  - Asthenia [Unknown]
  - Haematemesis [Unknown]
  - Rash [Unknown]
  - Dyspnoea [Unknown]
  - Cough [Unknown]
  - Eructation [Unknown]

NARRATIVE: CASE EVENT DATE: 20150528
